FAERS Safety Report 13950676 (Version 1)
Quarter: 2017Q3

REPORT INFORMATION
  Report Type: Spontaneous
  Country: US (occurrence: US)
  Receive Date: 20170908
  Receipt Date: 20170908
  Transmission Date: 20171128
  Serious: No
  Sender: FDA-Public Use
  Company Number: US-ROCHE-1136833

PATIENT
  Sex: Male

DRUGS (8)
  1. IBUPROFEN. [Concomitant]
     Active Substance: IBUPROFEN
     Route: 048
  2. CHLORAMBUCIL [Concomitant]
     Active Substance: CHLORAMBUCIL
     Route: 048
  3. NORVASC [Concomitant]
     Active Substance: AMLODIPINE BESYLATE
     Route: 048
  4. ARANESP [Concomitant]
     Active Substance: DARBEPOETIN ALFA
     Route: 065
     Dates: start: 20000227
  5. PROCRIT [Concomitant]
     Active Substance: ERYTHROPOIETIN
  6. RESTORIL [Concomitant]
     Active Substance: TEMAZEPAM
  7. RITUXAN [Suspect]
     Active Substance: RITUXIMAB
     Indication: HAEMOLYTIC ANAEMIA
     Route: 065
  8. ARANESP [Concomitant]
     Active Substance: DARBEPOETIN ALFA
     Route: 058
     Dates: start: 20000213

REACTIONS (5)
  - Hydronephrosis [Unknown]
  - Headache [Unknown]
  - Weight decreased [Unknown]
  - Nocturia [Unknown]
  - Chills [Unknown]
